FAERS Safety Report 20596547 (Version 2)
Quarter: 2022Q1

REPORT INFORMATION
  Report Type: Spontaneous
  Country: US (occurrence: None)
  Receive Date: 20220315
  Receipt Date: 20220315
  Transmission Date: 20220424
  Serious: No
  Sender: FDA-Public Use
  Company Number: US-ROCHE-2905971

PATIENT
  Sex: Female
  Weight: 77.180 kg

DRUGS (9)
  1. XOLAIR [Suspect]
     Active Substance: OMALIZUMAB
     Indication: Asthma
     Dosage: 2 INJECTIONS PER DOSE ;ONGOING: NO
     Route: 065
     Dates: start: 2009, end: 202102
  2. XOLAIR [Suspect]
     Active Substance: OMALIZUMAB
     Dosage: 2 INJECTIONS PER DOSE ;ONGOING: YES
     Route: 065
     Dates: start: 202106
  3. NUCALA [Concomitant]
     Active Substance: MEPOLIZUMAB
     Indication: Asthma
     Dosage: YES
     Dates: start: 202102
  4. PREDNISONE [Concomitant]
     Active Substance: PREDNISONE
     Indication: Asthma
     Dosage: AS NEEDED (TOOK 2 TABLETS THE FIRST DAY AND ONE DAILY FOR THE REMAINDER) ;ONGOING: NO
     Route: 048
  5. VENTOLIN [Concomitant]
     Active Substance: ALBUTEROL SULFATE
     Indication: Asthma
     Dosage: AS NEEDED (AT LEAST TWICE A DAY) ;ONGOING: YES
     Route: 055
     Dates: start: 1968
  6. SYMBICORT [Concomitant]
     Active Substance: BUDESONIDE\FORMOTEROL FUMARATE DIHYDRATE
     Indication: Asthma
     Dosage: 160/4.5 MCG AS NEEDED (TAKES WITH THE VENTOLIN) ;ONGOING: YES
     Route: 055
     Dates: start: 2009
  7. ALBUTEROL [Concomitant]
     Active Substance: ALBUTEROL
     Indication: Asthma
     Dosage: 2.5 MG PER 3 ML AS NEEDED (THE PATIENT USES 2 PER DOSE) ;ONGOING: YES
     Route: 055
     Dates: start: 2009
  8. METFORMIN [Concomitant]
     Active Substance: METFORMIN HYDROCHLORIDE
     Indication: Diabetes mellitus
     Dosage: YES
     Route: 048
     Dates: start: 2008
  9. LEVOTHYROXINE [Concomitant]
     Active Substance: LEVOTHYROXINE
     Indication: Thyroidectomy
     Dosage: YES
     Route: 048
     Dates: start: 2009

REACTIONS (2)
  - Drug ineffective [Unknown]
  - Dyspnoea [Not Recovered/Not Resolved]
